FAERS Safety Report 7475204-4 (Version None)
Quarter: 2011Q2

REPORT INFORMATION
  Report Type: 
  Country: None (occurrence: None)
  Receive Date: 20110512
  Receipt Date: 20101001
  Transmission Date: 20111010
  Serious: No
  Sender: FDA-Public Use
  Company Number: A0884497A

PATIENT
  Age: 70 Year
  Sex: Female

DRUGS (2)
  1. BENICAR [Concomitant]
  2. DYNACIRC CR [Suspect]
     Indication: HYPERTENSION
     Dosage: 10MG PER DAY
     Route: 048
     Dates: start: 20100701, end: 20100930

REACTIONS (1)
  - JOINT SWELLING [None]
